FAERS Safety Report 17228774 (Version 2)
Quarter: 2020Q1

REPORT INFORMATION
  Report Type: Spontaneous
  Country: US (occurrence: US)
  Receive Date: 20200103
  Receipt Date: 20200109
  Transmission Date: 20200409
  Serious: No
  Sender: FDA-Public Use
  Company Number: US-PFIZER INC-2019562421

PATIENT
  Age: 32 Year
  Sex: Female

DRUGS (12)
  1. DEXAMETHASONE. [Suspect]
     Active Substance: DEXAMETHASONE
     Indication: ANAPHYLACTIC REACTION
     Dosage: 10 MG, UNK
  2. GLYCOPYRROLATE [GLYCOPYRRONIUM] [Suspect]
     Active Substance: GLYCOPYRRONIUM
     Indication: ANAPHYLACTIC REACTION
     Dosage: 0.2 MG, UNK
  3. MIFEPRISTONE [Suspect]
     Active Substance: MIFEPRISTONE
     Dosage: 200 MG, UNK
     Route: 048
  4. EPINEPHRINE. [Suspect]
     Active Substance: EPINEPHRINE
     Indication: ANAPHYLACTIC REACTION
     Dosage: 0.3 MG
     Route: 030
  5. EPINEPHRINE. [Suspect]
     Active Substance: EPINEPHRINE
     Dosage: 3 ADDITIONAL DOSES
  6. DIPHENHYDRAMINE HCL [Suspect]
     Active Substance: DIPHENHYDRAMINE HYDROCHLORIDE
     Indication: ANAPHYLACTIC REACTION
     Dosage: 50 MG, UNK
  7. DIPHENHYDRAMINE HCL [Suspect]
     Active Substance: DIPHENHYDRAMINE HYDROCHLORIDE
     Dosage: UNK (REPEAT)
  8. CHLORHEXIDINE [Suspect]
     Active Substance: CHLORHEXIDINE
     Dosage: UNK
  9. EPINEPHRINE. [Suspect]
     Active Substance: EPINEPHRINE
     Dosage: INFUSION
  10. BUPIVACAINE HCL [Suspect]
     Active Substance: BUPIVACAINE HYDROCHLORIDE
     Dosage: 20 ML, UNK (20 CC)
  11. RANITIDINE. [Suspect]
     Active Substance: RANITIDINE
     Indication: ANAPHYLACTIC REACTION
     Dosage: 50 MG, UNK
  12. HERBALS\LAMINARIA JAPONICA [Suspect]
     Active Substance: HERBALS\LAMINARIA JAPONICA
     Indication: ABORTION INDUCED

REACTIONS (1)
  - Maternal exposure during pregnancy [Unknown]
